FAERS Safety Report 18160406 (Version 1)
Quarter: 2020Q3

REPORT INFORMATION
  Report Type: Spontaneous
  Country: BR (occurrence: BR)
  Receive Date: 20200817
  Receipt Date: 20200817
  Transmission Date: 20201103
  Serious: Yes (Death, Other)
  Sender: FDA-Public Use
  Company Number: BR-MYLANLABS-2020M1072279

PATIENT
  Age: 57 Year
  Sex: Male
  Weight: 80 kg

DRUGS (3)
  1. POLYMYXIN B. [Suspect]
     Active Substance: POLYMYXIN B
     Indication: TRACHEOBRONCHITIS
     Dosage: 1000000 INTERNATIONAL UNIT, BID
     Route: 042
     Dates: start: 20200720, end: 20200722
  2. MEROPENEM. [Concomitant]
     Active Substance: MEROPENEM
     Indication: TRACHEOBRONCHITIS
     Dosage: 1000 MILLIGRAM, Q8H
     Dates: start: 20200720, end: 20200722
  3. FLUCONAZOL [Concomitant]
     Active Substance: FLUCONAZOLE
     Indication: CANDIDA INFECTION
     Dosage: 200 MILLIGRAM, QD
     Route: 042
     Dates: start: 20200713, end: 20200719

REACTIONS (6)
  - Stevens-Johnson syndrome [Not Recovered/Not Resolved]
  - Cardio-respiratory arrest [Fatal]
  - Rash [Not Recovered/Not Resolved]
  - Oedema [Not Recovered/Not Resolved]
  - Hyperaemia [Not Recovered/Not Resolved]
  - Ecchymosis [Not Recovered/Not Resolved]

NARRATIVE: CASE EVENT DATE: 20200720
